FAERS Safety Report 20205199 (Version 1)
Quarter: 2021Q4

REPORT INFORMATION
  Report Type: Other
  Country: US (occurrence: None)
  Receive Date: 20211220
  Receipt Date: 20211220
  Transmission Date: 20220304
  Serious: Yes (Hospitalization)
  Sender: FDA-Public Use
  Company Number: US-ROCHE-2980137

PATIENT

DRUGS (2)
  1. DORNASE ALFA [Suspect]
     Active Substance: DORNASE ALFA
     Indication: Pleural infection
     Route: 034
  2. ALTEPLASE [Suspect]
     Active Substance: ALTEPLASE
     Indication: Pleural infection
     Route: 034

REACTIONS (1)
  - Haemothorax [Unknown]
